FAERS Safety Report 13648326 (Version 2)
Quarter: 2017Q2

REPORT INFORMATION
  Report Type: Spontaneous
  Country: PT (occurrence: PT)
  Receive Date: 20170613
  Receipt Date: 20170620
  Transmission Date: 20170830
  Serious: Yes (Hospitalization, Other)
  Sender: FDA-Public Use
  Company Number: PT-BAYER-2017-112876

PATIENT
  Age: 86 Year
  Sex: Female

DRUGS (5)
  1. ACETYLSALICYLIC ACID (} 100 MG) [Suspect]
     Active Substance: ASPIRIN
  2. BIPERIDEN HYDROCHLORIDE [Concomitant]
     Active Substance: BIPERIDEN HYDROCHLORIDE
  3. MELPERON [Concomitant]
     Active Substance: MELPERONE
  4. OMEPRAZOLE. [Suspect]
     Active Substance: OMEPRAZOLE
  5. SELEGILINE [Concomitant]
     Active Substance: SELEGILINE

REACTIONS (10)
  - C-reactive protein increased [None]
  - Haematemesis [None]
  - Abdominal pain upper [None]
  - Abdominal tenderness [None]
  - Hyperglycaemia [None]
  - Drug ineffective [None]
  - Leukocytosis [None]
  - Gastrointestinal necrosis [Recovering/Resolving]
  - Acute kidney injury [None]
  - Normochromic normocytic anaemia [None]
